FAERS Safety Report 6240349-3 (Version None)
Quarter: 2009Q2

REPORT INFORMATION
  Report Type: 
  Country: None (occurrence: None)
  Receive Date: 20090623
  Receipt Date: 20080819
  Transmission Date: 20091009
  Serious: No
  Sender: FDA-Public Use
  Company Number: US-ASTRAZENECA-2008UW16551

PATIENT
  Age: 58 Year
  Sex: Female
  Weight: 72.5 kg

DRUGS (2)
  1. PULMICORT-100 [Suspect]
     Route: 055
  2. CLONAZEPAM [Concomitant]

REACTIONS (1)
  - MALAISE [None]
